FAERS Safety Report 9060632 (Version 2)
Quarter: 2013Q1

REPORT INFORMATION
  Report Type: Spontaneous
  Country: US (occurrence: US)
  Receive Date: 20130212
  Receipt Date: 20130226
  Transmission Date: 20140127
  Serious: Yes (Other)
  Sender: FDA-Public Use
  Company Number: CHPA2013US001907

PATIENT
  Age: 62 Year
  Sex: Female
  Weight: 95.24 kg

DRUGS (8)
  1. EXCEDRIN EXTRA STRENGTH [Suspect]
     Indication: HEADACHE
     Dosage: 2 DF, PRN
     Route: 048
     Dates: start: 1983
  2. EXCEDRIN EXTRA STRENGTH [Suspect]
     Indication: HEADACHE
     Dosage: 2 DF, PRN
     Route: 048
  3. EXCEDRIN EXTRA STRENGTH [Suspect]
     Indication: HEADACHE
     Dosage: 2 DF, PRN
     Route: 048
  4. EXCEDRIN EXTRA STRENGTH [Suspect]
     Indication: HEADACHE
     Dosage: 2 DF, PRN
     Route: 048
  5. IBUPROFEN [Suspect]
     Indication: HEADACHE
     Dosage: UNK, UNK
  6. ACETYLSALICYLIC ACID W/CAFFEINE/PARACETAMOL [Suspect]
     Indication: HEADACHE
     Dosage: UNK, UNK
  7. ACETYLSALICYLIC ACID [Suspect]
     Indication: HEADACHE
     Dosage: UNK, UNK
  8. ANALGESICS [Suspect]
     Indication: HEADACHE
     Dosage: UNK, UNK

REACTIONS (3)
  - Hypertension [Not Recovered/Not Resolved]
  - Weight increased [Not Recovered/Not Resolved]
  - Therapeutic response decreased [Not Recovered/Not Resolved]
